FAERS Safety Report 7278117-6 (Version None)
Quarter: 2011Q1

REPORT INFORMATION
  Report Type: 
  Country: None (occurrence: None)
  Receive Date: 20110111
  Receipt Date: 20110111
  Transmission Date: 20110831
  Serious: Yes (Hospitalization)
  Sender: FDA-Public Use
  Company Number: None

PATIENT
  Age: 52 Year
  Sex: Female
  Weight: 77.5651 kg

DRUGS (1)
  1. TRIAD STERIL ALCOHOL PREP PAD TRIAD GROUP [Suspect]
     Indication: THERAPEUTIC SKIN CARE TOPICAL
     Dosage: ONE DAILY TOP
     Route: 061
     Dates: start: 20101001, end: 20101231

REACTIONS (2)
  - SEPSIS [None]
  - PYELONEPHRITIS [None]
